FAERS Safety Report 6438982-9 (Version None)
Quarter: 2009Q4

REPORT INFORMATION
  Report Type: 
  Country: None (occurrence: None)
  Receive Date: 20091113
  Receipt Date: 20091103
  Transmission Date: 20100525
  Serious: No
  Sender: FDA-Public Use
  Company Number: US-B.I. PHARMACEUTICALS,INC./RIDGEFIELD-2009-BP-12853BP

PATIENT
  Sex: Female

DRUGS (4)
  1. SPIRIVA [Suspect]
     Indication: CHRONIC OBSTRUCTIVE PULMONARY DISEASE
     Dosage: 18 MCG
     Route: 055
     Dates: start: 20070101, end: 20070101
  2. PREDNISONE [Concomitant]
     Indication: POLYMYOSITIS
     Dosage: 10 MG
     Dates: start: 20010101
  3. METFORMIN HCL [Concomitant]
     Indication: DIABETES MELLITUS
     Dates: start: 20010101, end: 20070101
  4. INSULIN [Concomitant]
     Indication: DIABETES MELLITUS
     Dates: start: 20070101

REACTIONS (1)
  - VISION BLURRED [None]
